FAERS Safety Report 6567366-8 (Version None)
Quarter: 2010Q1

REPORT INFORMATION
  Report Type: 
  Country: None (occurrence: None)
  Receive Date: 20100202
  Receipt Date: 20100125
  Transmission Date: 20100710
  Serious: Yes (Disabling, Other)
  Sender: FDA-Public Use
  Company Number: PHHY2010BR04509

PATIENT
  Age: 83 Year
  Sex: Female
  Weight: 68 kg

DRUGS (9)
  1. FORASEQ [Suspect]
     Indication: DYSPNOEA
     Dosage: BID
  2. FORASEQ [Suspect]
     Indication: BRONCHITIS
  3. PROLOPA [Concomitant]
     Dosage: ONCE A DAY
     Route: 048
  4. MODURETIC 5-50 [Concomitant]
     Dosage: UNK
  5. VERAPAMIL HCL [Concomitant]
     Dosage: UNK
     Route: 048
  6. FLUOXETINE [Concomitant]
     Dosage: UNK
     Route: 048
  7. OMEPRAZOLE [Concomitant]
     Indication: ABDOMINAL PAIN UPPER
     Dosage: UNK
     Route: 048
  8. HUMULIN R [Concomitant]
     Indication: DIABETES MELLITUS
     Dosage: 20 UI, QD
     Route: 048
  9. FERROUS SULFATE TAB [Concomitant]
     Indication: ANAEMIA
     Dosage: UNK
     Route: 048

REACTIONS (6)
  - BEDRIDDEN [None]
  - DEHYDRATION [None]
  - DIARRHOEA [None]
  - DRUG ADMINISTRATION ERROR [None]
  - SPINAL DISORDER [None]
  - WALKING DISABILITY [None]
